FAERS Safety Report 25389800 (Version 1)
Quarter: 2025Q2

REPORT INFORMATION
  Report Type: Spontaneous
  Country: CN (occurrence: CN)
  Receive Date: 20250603
  Receipt Date: 20250603
  Transmission Date: 20250716
  Serious: Yes (Other)
  Sender: AUROBINDO
  Company Number: CN-AUROBINDO-AUR-APL-2025-028709

PATIENT
  Age: 33 Year
  Sex: Male
  Weight: 91 kg

DRUGS (6)
  1. EVOMELA [Suspect]
     Active Substance: MELPHALAN HYDROCHLORIDE
     Indication: Autologous haematopoietic stem cell transplant
     Dosage: 250 MILLIGRAM, ONCE A DAY (DAY-2)
     Route: 041
     Dates: start: 20250426, end: 20250426
  2. EVOMELA [Suspect]
     Active Substance: MELPHALAN HYDROCHLORIDE
     Indication: T-cell lymphoma
  3. EVOMELA [Suspect]
     Active Substance: MELPHALAN HYDROCHLORIDE
     Indication: Anaplastic large cell lymphoma T- and null-cell types
  4. CARMUSTINE [Concomitant]
     Active Substance: CARMUSTINE
     Indication: Product used for unknown indication
     Route: 065
     Dates: start: 20250421
  5. ETOPOSIDE [Concomitant]
     Active Substance: ETOPOSIDE
     Indication: Product used for unknown indication
     Route: 065
     Dates: start: 20250422
  6. CYTARABINE [Concomitant]
     Active Substance: CYTARABINE
     Indication: Product used for unknown indication
     Route: 065
     Dates: start: 20250422

REACTIONS (1)
  - Haemolytic anaemia [Recovering/Resolving]

NARRATIVE: CASE EVENT DATE: 20250503
